FAERS Safety Report 21237044 (Version 1)
Quarter: 2022Q3

REPORT INFORMATION
  Report Type: Spontaneous
  Country: US (occurrence: US)
  Receive Date: 20220822
  Receipt Date: 20220822
  Transmission Date: 20221027
  Serious: Yes (Hospitalization, Other)
  Sender: FDA-Public Use
  Company Number: US-MLMSERVICE-20220803-3714164-1

PATIENT
  Age: 67 Year
  Sex: Male

DRUGS (6)
  1. IBUPROFEN [Suspect]
     Active Substance: IBUPROFEN
     Indication: Osteoarthritis
     Dosage: 800 MILLIGRAM, FOUR TIMES/DAY
     Route: 065
  2. NAPROXEN [Suspect]
     Active Substance: NAPROXEN
     Indication: Osteoarthritis
     Dosage: 500 MILLIGRAM, TWO TIMES A DAY
     Route: 065
  3. ALLOPURINOL [Concomitant]
     Active Substance: ALLOPURINOL
     Indication: Product used for unknown indication
     Dosage: UNK
     Route: 065
  4. ATENOLOL [Concomitant]
     Active Substance: ATENOLOL
     Indication: Product used for unknown indication
     Dosage: UNK
     Route: 065
  5. HYDROCHLOROTHIAZIDE [Concomitant]
     Active Substance: HYDROCHLOROTHIAZIDE
     Indication: Product used for unknown indication
     Dosage: UNK
     Route: 065
  6. PRAVASTATIN [Concomitant]
     Active Substance: PRAVASTATIN
     Indication: Product used for unknown indication
     Dosage: UNK
     Route: 065

REACTIONS (7)
  - Renal arteriosclerosis [Recovered/Resolved]
  - Acute kidney injury [Recovered/Resolved]
  - Kidney fibrosis [Recovered/Resolved]
  - Renal tubular atrophy [Recovered/Resolved]
  - IgM nephropathy [Recovered/Resolved]
  - Nephrotic syndrome [Recovered/Resolved]
  - Extra dose administered [Recovered/Resolved]
